FAERS Safety Report 14195836 (Version 1)
Quarter: 2017Q4

REPORT INFORMATION
  Report Type: Spontaneous
  Country: US (occurrence: US)
  Receive Date: 20171116
  Receipt Date: 20171116
  Transmission Date: 20180321
  Serious: No
  Sender: FDA-Public Use
  Company Number: US-ALLERGAN-1725314US

PATIENT
  Age: 34 Year
  Sex: Male

DRUGS (3)
  1. ACZONE [Concomitant]
     Active Substance: DAPSONE
     Indication: ACNE
     Dosage: UNK UNK, QD
     Route: 061
     Dates: start: 20170506
  2. RHOFADE [Suspect]
     Active Substance: OXYMETAZOLINE HYDROCHLORIDE
     Indication: ROSACEA
     Dosage: UNK UNK, QD
     Route: 061
     Dates: start: 20170506, end: 20170513
  3. ACZONE [Concomitant]
     Active Substance: DAPSONE
     Indication: ROSACEA

REACTIONS (1)
  - Condition aggravated [Recovered/Resolved]
